FAERS Safety Report 13904875 (Version 1)
Quarter: 2017Q3

REPORT INFORMATION
  Report Type: Spontaneous
  Country: DE (occurrence: DE)
  Receive Date: 20170825
  Receipt Date: 20170825
  Transmission Date: 20171127
  Serious: Yes (Hospitalization)
  Sender: FDA-Public Use
  Company Number: DE-DRREDDYS-GER/GER/17/0092687

PATIENT
  Age: 10 Year
  Sex: Male
  Weight: 33 kg

DRUGS (5)
  1. METAMIZOL [Suspect]
     Active Substance: METAMIZOLE SODIUM
     Indication: PAIN MANAGEMENT
     Route: 048
     Dates: start: 201701, end: 20170310
  2. TRAMADOL. [Concomitant]
     Active Substance: TRAMADOL
     Indication: PAIN MANAGEMENT
     Route: 048
     Dates: start: 201701
  3. LEVETIRACETAM. [Concomitant]
     Active Substance: LEVETIRACETAM
     Indication: EPILEPSY
     Route: 048
     Dates: start: 201301
  4. LAMOTRIGINE. [Suspect]
     Active Substance: LAMOTRIGINE
     Indication: EPILEPSY
     Dosage: 70-0-75MG
     Route: 048
     Dates: start: 201701, end: 20170310
  5. CETIRIZIN SAFT [Concomitant]
     Indication: RASH
     Route: 048
     Dates: start: 201703, end: 20170315

REACTIONS (3)
  - Urticaria [Recovered/Resolved]
  - Eyelid oedema [Recovered/Resolved]
  - Drug eruption [Recovered/Resolved]

NARRATIVE: CASE EVENT DATE: 20170307
